FAERS Safety Report 25605552 (Version 1)
Quarter: 2025Q3

REPORT INFORMATION
  Report Type: Spontaneous
  Country: US (occurrence: None)
  Receive Date: 20250724
  Receipt Date: 20250724
  Transmission Date: 20251021
  Serious: Yes (Hospitalization)
  Sender: FDA-CTU
  Company Number: None

PATIENT
  Sex: Male

DRUGS (11)
  1. LENALIDOMIDE [Suspect]
     Active Substance: LENALIDOMIDE
     Indication: Essential hypertension
     Route: 048
     Dates: start: 20250103
  2. AMLOD/VALSAR [Concomitant]
  3. BUTRANS [Concomitant]
     Active Substance: BUPRENORPHINE
  4. CITALOPRAM [Suspect]
     Active Substance: CITALOPRAM
  5. CYCLOBENZAPRINE [Concomitant]
     Active Substance: CYCLOBENZAPRINE
  6. DARZALEX [Concomitant]
     Active Substance: DARATUMUMAB
  7. IBUPROFEN [Concomitant]
     Active Substance: IBUPROFEN
  8. ONDANSETRON [Concomitant]
     Active Substance: ONDANSETRON
  9. ROSUVASTATIN [Concomitant]
     Active Substance: ROSUVASTATIN
  10. TYLENOL [Concomitant]
     Active Substance: ACETAMINOPHEN
  11. VELCADE [Concomitant]
     Active Substance: BORTEZOMIB

REACTIONS (4)
  - Pulmonary thrombosis [None]
  - Paralysis [None]
  - Therapy interrupted [None]
  - Asthenia [None]
